FAERS Safety Report 10045013 (Version 1)
Quarter: 2014Q1

REPORT INFORMATION
  Report Type: Spontaneous
  Country: GB (occurrence: None)
  Receive Date: 20140326
  Receipt Date: 20140326
  Transmission Date: 20141002
  Serious: Yes (Other)
  Sender: FDA-Public Use
  Company Number: 2014056363

PATIENT
  Age: 70 Year
  Sex: Male
  Weight: 115 kg

DRUGS (1)
  1. FRAGMIN [Suspect]
     Indication: THROMBOSIS PROPHYLAXIS
     Dates: start: 20140117

REACTIONS (2)
  - Tooth abscess [None]
  - Pain in extremity [None]
